FAERS Safety Report 5839848-5 (Version None)
Quarter: 2008Q3

REPORT INFORMATION
  Report Type: 
  Country: None (occurrence: None)
  Receive Date: 20080811
  Receipt Date: 20080731
  Transmission Date: 20090109
  Serious: Yes (Other)
  Sender: FDA-Public Use
  Company Number: JP-ELI_LILLY_AND_COMPANY-JP200808001159

PATIENT
  Sex: Female
  Weight: 20 kg

DRUGS (5)
  1. HUMATROPE [Suspect]
     Indication: GROWTH HORMONE DEFICIENCY
     Dosage: 0.4 MG, 6/W
     Route: 058
     Dates: start: 20031113, end: 20041114
  2. HUMATROPE [Suspect]
     Dosage: 0.47 MG, 6/W
     Route: 058
     Dates: start: 20041115, end: 20050328
  3. HUMATROPE [Suspect]
     Dosage: 0.53 MG, 6/W
     Route: 058
     Dates: start: 20050329, end: 20061105
  4. HUMATROPE [Suspect]
     Dosage: 0.8 MG, 6/W
     Route: 058
     Dates: start: 20061106, end: 20070530
  5. HUMATROPE [Suspect]
     Dosage: 0.6 MG, 6/W
     Route: 058
     Dates: start: 20070531

REACTIONS (1)
  - SPONDYLOLYSIS [None]
